FAERS Safety Report 15689648 (Version 1)
Quarter: 2018Q4

REPORT INFORMATION
  Report Type: Report from Study
  Country: CA (occurrence: CA)
  Receive Date: 20181205
  Receipt Date: 20181205
  Transmission Date: 20190205
  Serious: Yes (Other)
  Sender: FDA-Public Use
  Company Number: CA-TAKEDA-2018TUS012486

PATIENT
  Age: 50 Year
  Sex: Female

DRUGS (3)
  1. ENTOCORT [Concomitant]
     Active Substance: BUDESONIDE
     Dosage: UNK
  2. VEDOLIZUMAB [Suspect]
     Active Substance: VEDOLIZUMAB
     Indication: CROHN^S DISEASE
     Dosage: 300 MG, UNK
     Route: 042
     Dates: start: 20170918
  3. DICETEL [Concomitant]
     Active Substance: PINAVERIUM BROMIDE
     Dosage: 50 MG, UNK

REACTIONS (2)
  - Faecal calprotectin increased [Unknown]
  - Intestinal resection [Unknown]

NARRATIVE: CASE EVENT DATE: 20181121
